FAERS Safety Report 14236792 (Version 1)
Quarter: 2017Q4

REPORT INFORMATION
  Report Type: Spontaneous
  Country: CH (occurrence: CH)
  Receive Date: 20171129
  Receipt Date: 20171129
  Transmission Date: 20180321
  Serious: Yes (Other)
  Sender: FDA-Public Use
  Company Number: CH-ACTELION-A-US2017-163421

PATIENT
  Sex: Female

DRUGS (1)
  1. VENTAVIS [Suspect]
     Active Substance: ILOPROST
     Indication: OCCUPATIONAL EXPOSURE TO PRODUCT
     Route: 065

REACTIONS (2)
  - Exposure during pregnancy [Unknown]
  - Occupational exposure to product [Unknown]
